FAERS Safety Report 4470708-0 (Version None)
Quarter: 2004Q4

REPORT INFORMATION
  Report Type: 
  Country: None (occurrence: None)
  Receive Date: 20041005
  Receipt Date: 20040928
  Transmission Date: 20050328
  Serious: Yes (Death, Other)
  Sender: FDA-Public Use
  Company Number: USA-2004-0016758

PATIENT
  Sex: Female

DRUGS (3)
  1. OXYCONTIN [Suspect]
     Dosage: 10 MG
  2. BENADRYL [Concomitant]
  3. ACETAMINOPHEN [Suspect]

REACTIONS (1)
  - MEDICATION ERROR [None]
